FAERS Safety Report 4880003-3 (Version None)
Quarter: 2006Q1

REPORT INFORMATION
  Report Type: 
  Country: None (occurrence: None)
  Receive Date: 20060111
  Receipt Date: 20050927
  Transmission Date: 20060701
  Serious: No
  Sender: FDA-Public Use
  Company Number: 2005S1000201

PATIENT
  Age: 29 Year
  Weight: 81 kg

DRUGS (2)
  1. CUBICIN [Suspect]
     Indication: ESCHERICHIA INFECTION
     Dosage: 320 MG;Q24H;IV
     Route: 042
     Dates: start: 20050912, end: 20050917
  2. CUBICIN [Suspect]
     Indication: STAPHYLOCOCCAL INFECTION
     Dosage: 320 MG;Q24H;IV
     Route: 042
     Dates: start: 20050912, end: 20050917

REACTIONS (3)
  - DYSPNOEA [None]
  - HYPERSENSITIVITY [None]
  - THROAT TIGHTNESS [None]
